FAERS Safety Report 13739572 (Version 1)
Quarter: 2017Q3

REPORT INFORMATION
  Report Type: Spontaneous
  Country: BR (occurrence: BR)
  Receive Date: 20170710
  Receipt Date: 20170710
  Transmission Date: 20171127
  Serious: Yes (Other)
  Sender: FDA-Public Use
  Company Number: PHHY2013BR045778

PATIENT
  Sex: Female
  Weight: 64 kg

DRUGS (2)
  1. NIFELAT [Concomitant]
     Active Substance: ATENOLOL\NIFEDIPINE
     Indication: HYPERTENSION
     Dosage: 1 DF, DAILY
     Route: 048
  2. HYDERGINE [Suspect]
     Active Substance: ERGOLOID MESYLATES
     Indication: COMPUTERISED TOMOGRAM ABNORMAL
     Dosage: 4.5 MG, QD
     Route: 048
     Dates: end: 20130505

REACTIONS (2)
  - Diabetes mellitus [Recovered/Resolved]
  - Bone disorder [Recovering/Resolving]
